FAERS Safety Report 6032471-1 (Version None)
Quarter: 2009Q1

REPORT INFORMATION
  Report Type: 
  Country: None (occurrence: None)
  Receive Date: 20090107
  Receipt Date: 20081031
  Transmission Date: 20090719
  Serious: No
  Sender: FDA-Public Use
  Company Number: C-08-0071-W

PATIENT
  Age: 54 Year
  Sex: Female
  Weight: 93.8946 kg

DRUGS (1)
  1. CEFTRIAXONE [Suspect]
     Indication: SINUSITIS
     Dosage: 1GM/INJECTED (GLUTEAL)

REACTIONS (1)
  - INJECTION SITE PAIN [None]
